FAERS Safety Report 11049319 (Version 1)
Quarter: 2015Q2

REPORT INFORMATION
  Report Type: Report from Study
  Country: US (occurrence: US)
  Receive Date: 20150420
  Receipt Date: 20150420
  Transmission Date: 20150821
  Serious: Yes (Hospitalization, Other)
  Sender: FDA-Public Use
  Company Number: US-MYLANLABS-2015M1011514

PATIENT

DRUGS (9)
  1. AMLODIPINE [Suspect]
     Active Substance: AMLODIPINE BESYLATE
     Indication: PRODUCT USED FOR UNKNOWN INDICATION
     Dosage: UNK
  2. DILTIAZEM [Suspect]
     Active Substance: DILTIAZEM
     Indication: PRODUCT USED FOR UNKNOWN INDICATION
     Dosage: UNK
  3. ISOSORBIDE [Suspect]
     Active Substance: ISOSORBIDE
     Indication: PRODUCT USED FOR UNKNOWN INDICATION
     Dosage: UNK
  4. ENZALUTAMIDE [Suspect]
     Active Substance: ENZALUTAMIDE
     Indication: PROSTATE CANCER METASTATIC
     Dosage: UNK
     Dates: start: 20150113
  5. PREDNISONE. [Suspect]
     Active Substance: PREDNISONE
     Indication: PROSTATE CANCER METASTATIC
     Dosage: UNK
     Dates: start: 20150113
  6. AMIODARONE [Suspect]
     Active Substance: AMIODARONE
     Indication: PRODUCT USED FOR UNKNOWN INDICATION
     Dosage: UNK
  7. ABIRATERONE ACETATE [Suspect]
     Active Substance: ABIRATERONE ACETATE
     Indication: PROSTATE CANCER METASTATIC
     Dosage: UNK
     Dates: start: 20150113
  8. FUROSEMIDE. [Suspect]
     Active Substance: FUROSEMIDE
     Indication: PRODUCT USED FOR UNKNOWN INDICATION
     Dosage: UNK
  9. HYDRALAZINE [Suspect]
     Active Substance: HYDRALAZINE HYDROCHLORIDE
     Indication: PRODUCT USED FOR UNKNOWN INDICATION
     Dosage: UNK

REACTIONS (3)
  - Pleural effusion [Recovering/Resolving]
  - Pulmonary oedema [Recovering/Resolving]
  - Cardiac failure [Recovering/Resolving]

NARRATIVE: CASE EVENT DATE: 20150116
